FAERS Safety Report 4416130-4 (Version None)
Quarter: 2004Q3

REPORT INFORMATION
  Report Type: 
  Country: None (occurrence: None)
  Receive Date: 20040804
  Receipt Date: 20040804
  Transmission Date: 20050211
  Serious: No
  Sender: FDA-Public Use
  Company Number: None

PATIENT
  Age: 39 Year
  Sex: Male
  Weight: 94 kg

DRUGS (2)
  1. MORPHINE [Suspect]
     Indication: POST PROCEDURAL PAIN
     Dosage: PCA
     Dates: start: 20040708
  2. PROMETHAZINE [Suspect]
     Dosage: 12.5 MG IV
     Route: 042

REACTIONS (5)
  - CARDIO-RESPIRATORY ARREST [None]
  - CYANOSIS [None]
  - DEPRESSED LEVEL OF CONSCIOUSNESS [None]
  - NAUSEA [None]
  - PAIN [None]
